FAERS Safety Report 4580037-2 (Version None)
Quarter: 2005Q1

REPORT INFORMATION
  Report Type: 
  Country: None (occurrence: None)
  Receive Date: 20050214
  Receipt Date: 20050207
  Transmission Date: 20050727
  Serious: Yes (Other)
  Sender: FDA-Public Use
  Company Number: JP-MERCK-0502USA01138

PATIENT
  Age: 80 Year
  Sex: Female

DRUGS (9)
  1. COZAAR [Suspect]
     Route: 048
  2. PIROXICAM [Suspect]
     Route: 048
  3. LOXONIN [Suspect]
     Route: 048
  4. NORVASC [Concomitant]
     Route: 048
  5. ANPLAG [Concomitant]
     Route: 048
  6. BASEN [Concomitant]
     Route: 048
  7. MAGNESIUM OXIDE [Concomitant]
     Route: 048
  8. ETIZOLAM [Concomitant]
     Route: 048
  9. MECOBALAMIN [Concomitant]
     Route: 065

REACTIONS (3)
  - BLOOD POTASSIUM INCREASED [None]
  - BLOOD UREA INCREASED [None]
  - RENAL DISORDER [None]
